FAERS Safety Report 10740563 (Version 1)
Quarter: 2015Q1

REPORT INFORMATION
  Report Type: Spontaneous
  Country: US (occurrence: None)
  Receive Date: 20150123
  Receipt Date: 20150123
  Transmission Date: 20150721
  Serious: Yes (Hospitalization)
  Sender: FDA-Public Use
  Company Number: None

PATIENT
  Age: 55 Year
  Sex: Female

DRUGS (4)
  1. ENBREL [Suspect]
     Active Substance: ETANERCEPT
     Indication: RHEUMATOID ARTHRITIS
     Dosage: 50MG WEEKLY SUB Q
     Dates: start: 20140914, end: 201412
  2. PAIN KILLERS [Concomitant]
     Active Substance: UNSPECIFIED INGREDIENT
  3. METHOTREXATE [Concomitant]
     Active Substance: METHOTREXATE
     Dosage: 50MG WEEKLY SUB Q
  4. COUMADIN [Concomitant]
     Active Substance: WARFARIN SODIUM

REACTIONS (4)
  - Silent myocardial infarction [None]
  - Leg amputation [None]
  - Thrombosis [None]
  - Renal vascular thrombosis [None]

NARRATIVE: CASE EVENT DATE: 20141203
